FAERS Safety Report 9103624 (Version 4)
Quarter: 2020Q2

REPORT INFORMATION
  Report Type: Report from Study
  Country: DE (occurrence: DE)
  Receive Date: 20130218
  Receipt Date: 20200624
  Transmission Date: 20200714
  Serious: Yes (Other)
  Sender: FDA-Public Use
  Company Number: PHHY2013DE014180

PATIENT
  Sex: Male
  Weight: 69 kg

DRUGS (8)
  1. EXJADE [Suspect]
     Active Substance: DEFERASIROX
     Indication: MYELODYSPLASTIC SYNDROME
     Dosage: 125 MG, QD
     Route: 048
     Dates: start: 20110224
  2. FILGRASTIM [Concomitant]
     Active Substance: FILGRASTIM
     Indication: PRODUCT USED FOR UNKNOWN INDICATION
     Dosage: 30 UKN, UNK
     Route: 065
     Dates: start: 20121120, end: 20121124
  3. NORSPAN [Concomitant]
     Active Substance: BUPRENORPHINE
     Indication: PAIN
     Dosage: 240 MG, QD
     Route: 065
     Dates: start: 20120625
  4. NITROLINGUAL [Concomitant]
     Active Substance: NITROGLYCERIN
     Indication: CORONARY ARTERY DISEASE
     Dosage: 1 UKN, QD
     Route: 048
     Dates: start: 20121204
  5. CIPROBAY [Concomitant]
     Indication: INFECTION
     Dosage: 250 MG, QD
     Route: 048
     Dates: start: 20110714, end: 20110721
  6. CYKLOKAPRON [Concomitant]
     Active Substance: TRANEXAMIC ACID
     Indication: PRODUCT USED FOR UNKNOWN INDICATION
     Dosage: UNK
     Route: 065
     Dates: start: 20130115
  7. RETACRIT [Concomitant]
     Active Substance: EPOETIN ALFA-EPBX
     Indication: ANAEMIA
     Dosage: 30000 IU, QD
     Route: 042
     Dates: start: 20091111
  8. VIDAZA [Concomitant]
     Active Substance: AZACITIDINE
     Indication: PRODUCT USED FOR UNKNOWN INDICATION
     Dosage: 143 UKN, QD
     Route: 065
     Dates: start: 20110328

REACTIONS (2)
  - Diarrhoea [Recovered/Resolved]
  - Angina pectoris [Unknown]

NARRATIVE: CASE EVENT DATE: 20110718
